FAERS Safety Report 6868054-0 (Version None)
Quarter: 2010Q3

REPORT INFORMATION
  Report Type: 
  Country: None (occurrence: None)
  Receive Date: 20100722
  Receipt Date: 20080512
  Transmission Date: 20110219
  Serious: No
  Sender: FDA-Public Use
  Company Number: US-PFIZER INC-2008041704

PATIENT
  Sex: Male
  Weight: 95.25 kg

DRUGS (4)
  1. CHANTIX [Suspect]
     Indication: SMOKING CESSATION THERAPY
     Route: 048
     Dates: start: 20080501
  2. MORPHINE [Concomitant]
     Route: 048
     Dates: start: 20000101
  3. METHADONE HCL [Concomitant]
     Route: 048
     Dates: start: 20000101
  4. LISINOPRIL [Concomitant]
     Route: 048
     Dates: start: 20060101

REACTIONS (6)
  - ABNORMAL DREAMS [None]
  - DEPRESSION [None]
  - INSOMNIA [None]
  - IRRITABILITY [None]
  - MOOD SWINGS [None]
  - NIGHTMARE [None]
